FAERS Safety Report 7314577 (Version 4)
Quarter: 2013Q4

REPORT INFORMATION
  Report Type: Spontaneous
  Country: US (occurrence: US)
  Receive Date: 20100311
  Receipt Date: 20131223
  Transmission Date: 20140711
  Serious: Yes (Other)
  Sender: FDA-Public Use
  Company Number: US-BAYER-201015996NA

PATIENT
  Age: 17 Year
  Sex: Female

DRUGS (1)
  1. YASMIN [Suspect]
     Dosage: UNK
     Dates: start: 200407, end: 200609

REACTIONS (9)
  - Gallbladder disorder [Unknown]
  - Cholecystitis acute [None]
  - Gallbladder pain [Unknown]
  - Gastrointestinal disorder [Unknown]
  - Post cholecystectomy syndrome [None]
  - Psychological trauma [None]
  - Anxiety [None]
  - Injury [None]
  - Pain [None]
